FAERS Safety Report 21852502 (Version 2)
Quarter: 2023Q1

REPORT INFORMATION
  Report Type: Spontaneous
  Country: IT (occurrence: IT)
  Receive Date: 20230112
  Receipt Date: 20230223
  Transmission Date: 20230418
  Serious: Yes (Other)
  Sender: FDA-Public Use
  Company Number: None

PATIENT
  Age: 79 Year
  Sex: Male
  Weight: 81 kg

DRUGS (3)
  1. DOXORUBICIN [Suspect]
     Active Substance: DOXORUBICIN
     Indication: Liposarcoma
     Dosage: (DOSAGE FORM: POWDER FOR SOLUTION FOR INJECTION)
     Route: 042
     Dates: start: 20220907
  2. ONDANSETRON [Concomitant]
     Active Substance: ONDANSETRON
     Indication: Nausea
     Dosage: 8 MG FOR 15 MINUTES
     Route: 042
  3. DEXAMETHASONE [Concomitant]
     Active Substance: DEXAMETHASONE
     Indication: Drug hypersensitivity
     Dosage: 8 MG PER 15 MINUTES
     Route: 042

REACTIONS (2)
  - Leukopenia [Recovering/Resolving]
  - Anaemia [Recovering/Resolving]

NARRATIVE: CASE EVENT DATE: 20221020
